FAERS Safety Report 5719831-0 (Version None)
Quarter: 2008Q2

REPORT INFORMATION
  Report Type: 
  Country: None (occurrence: None)
  Receive Date: 20080428
  Receipt Date: 20080423
  Transmission Date: 20081010
  Serious: Yes (Death)
  Sender: FDA-Public Use
  Company Number: CN-MERCK-0804CHN00021

PATIENT
  Age: 31 Year
  Sex: Female
  Weight: 30 kg

DRUGS (3)
  1. PRIMAXIN [Suspect]
     Indication: LUNG INFECTION
     Route: 051
     Dates: start: 20080313, end: 20080318
  2. HYDROCHLOROTHIAZIDE [Concomitant]
     Indication: CARDIAC FAILURE
     Route: 048
  3. LANATOSIDE [Concomitant]
     Indication: CARDIAC FAILURE
     Route: 051

REACTIONS (4)
  - CARDIAC FAILURE [None]
  - HYPOACUSIS [None]
  - HYPOCHLORAEMIA [None]
  - METABOLIC ALKALOSIS [None]
